FAERS Safety Report 4525837-X (Version None)
Quarter: 2004Q4

REPORT INFORMATION
  Report Type: 
  Country: None (occurrence: None)
  Receive Date: 20041124
  Receipt Date: 20040323
  Transmission Date: 20050328
  Serious: Yes (Other)
  Sender: FDA-Public Use
  Company Number: PHEH2004US03377

PATIENT
  Age: 62 Year
  Sex: Male

DRUGS (1)
  1. MIOCHOL-E [Suspect]
     Indication: MIOSIS
     Dosage: ONCE/SINGLE, INTRAOCULAR INJ
     Route: 031
     Dates: start: 20040322, end: 20040322

REACTIONS (1)
  - CORNEAL OPACITY [None]
